FAERS Safety Report 4462905-5 (Version None)
Quarter: 2004Q3

REPORT INFORMATION
  Report Type: 
  Country: None (occurrence: None)
  Receive Date: 20040927
  Receipt Date: 20040910
  Transmission Date: 20050211
  Serious: Yes (Life-Threatening, Hospitalization)
  Sender: FDA-Public Use
  Company Number: 8007264

PATIENT
  Age: 39 Year
  Sex: Female

DRUGS (4)
  1. KEPPRA [Suspect]
     Indication: PARTIAL SEIZURES
     Dosage: 500 MG 2/D PO
     Route: 048
     Dates: start: 20040812, end: 20040910
  2. TEMOZOLOMID [Suspect]
     Indication: BRAIN NEOPLASM
     Dosage: 320 MG/D PO
     Route: 048
     Dates: start: 20040812, end: 20040823
  3. CARBAMAZEPINE [Concomitant]
  4. GABAPENTIN [Concomitant]

REACTIONS (7)
  - DYSURIA [None]
  - HAEMOGLOBIN DECREASED [None]
  - PANCYTOPENIA [None]
  - PARTIAL SEIZURES [None]
  - PETECHIAE [None]
  - POLLAKIURIA [None]
  - UROSEPSIS [None]
